FAERS Safety Report 4918995-6 (Version None)
Quarter: 2006Q1

REPORT INFORMATION
  Report Type: 
  Country: None (occurrence: None)
  Receive Date: 20060216
  Receipt Date: 20060118
  Transmission Date: 20060701
  Serious: Yes (Hospitalization)
  Sender: FDA-Public Use
  Company Number: COV2-2005-00521

PATIENT
  Age: 81 Year
  Sex: Female
  Weight: 59.5 kg

DRUGS (11)
  1. FOSRENOL [Suspect]
     Indication: HYPERPHOSPHATAEMIA
     Dosage: 500 MG, 3X/DAY;TID, ORAL
     Route: 048
     Dates: start: 20050518, end: 20050809
  2. FOSRENOL [Suspect]
     Indication: HYPERPHOSPHATAEMIA
     Dosage: 500 MG, 3X/DAY;TID, ORAL
     Route: 048
     Dates: start: 20050828
  3. TIMOLOL MALEATE [Concomitant]
  4. NORVASC [Concomitant]
  5. AMLODIPINE [Concomitant]
  6. PROTONIX [Concomitant]
  7. BENICAR HCT                    (OLMESARTAN MEDOXOMIL, HDYROCHLOROTHIAZ [Concomitant]
  8. COLACE             (DOCUSATE SODIUM) [Concomitant]
  9. ASPIRIN [Concomitant]
  10. DIOVAN [Concomitant]
  11. CATAPRES-TTS-1 [Concomitant]

REACTIONS (7)
  - AMNESIA [None]
  - ANAEMIA OF CHRONIC DISEASE [None]
  - BLOOD PRESSURE INCREASED [None]
  - CONFUSIONAL STATE [None]
  - DIZZINESS [None]
  - FEELING ABNORMAL [None]
  - SINUS BRADYCARDIA [None]
